FAERS Safety Report 22370439 (Version 4)
Quarter: 2024Q4

REPORT INFORMATION
  Report Type: Report from Study
  Country: IN (occurrence: IN)
  Receive Date: 20230526
  Receipt Date: 20241212
  Transmission Date: 20250115
  Serious: Yes (Hospitalization)
  Sender: ROCHE
  Company Number: IN-ROCHE-3354325

PATIENT
  Age: 39 Year
  Sex: Female

DRUGS (3)
  1. ACTEMRA [Suspect]
     Active Substance: TOCILIZUMAB
     Indication: Rheumatoid arthritis
     Dosage: FREQUENCY TEXT:15
     Route: 058
     Dates: start: 20220713
  2. ACTEMRA [Suspect]
     Active Substance: TOCILIZUMAB
     Dosage: FREQUENCY TEXT:15
     Route: 058
     Dates: start: 20230704
  3. ACTEMRA [Suspect]
     Active Substance: TOCILIZUMAB
     Indication: Rheumatoid arthritis
     Route: 042

REACTIONS (6)
  - Vasculitis [Recovered/Resolved with Sequelae]
  - Chest pain [Recovered/Resolved with Sequelae]
  - Weight increased [Unknown]
  - Rash [Recovered/Resolved with Sequelae]
  - Oral mucosal eruption [Recovered/Resolved with Sequelae]
  - Body temperature increased [Recovered/Resolved with Sequelae]

NARRATIVE: CASE EVENT DATE: 20230410
